FAERS Safety Report 20849631 (Version 2)
Quarter: 2022Q2

REPORT INFORMATION
  Report Type: Spontaneous
  Country: US (occurrence: US)
  Receive Date: 20220519
  Receipt Date: 20220623
  Transmission Date: 20220721
  Serious: No
  Sender: FDA-Public Use
  Company Number: US-PFIZER INC-202200624864

PATIENT
  Age: 76 Year
  Sex: Male
  Weight: 97.52 kg

DRUGS (4)
  1. GENOTROPIN [Suspect]
     Active Substance: SOMATROPIN
     Indication: Ankylosing spondylitis
     Dosage: 0.4 ONCE EVERY MORNING
     Dates: start: 2022
  2. GENOTROPIN [Suspect]
     Active Substance: SOMATROPIN
     Indication: Chronic obstructive pulmonary disease
  3. GENOTROPIN [Suspect]
     Active Substance: SOMATROPIN
     Indication: Emphysema
  4. GENOTROPIN [Suspect]
     Active Substance: SOMATROPIN
     Indication: Psoriatic arthropathy

REACTIONS (6)
  - Device leakage [Unknown]
  - Poor quality device used [Unknown]
  - Incorrect dose administered by device [Unknown]
  - Accidental overdose [Unknown]
  - Drug dose omission by device [Unknown]
  - Off label use [Unknown]

NARRATIVE: CASE EVENT DATE: 20220101
